FAERS Safety Report 23568995 (Version 1)
Quarter: 2024Q1

REPORT INFORMATION
  Report Type: Other
  Country: US (occurrence: None)
  Receive Date: 20240227
  Receipt Date: 20240227
  Transmission Date: 20240409
  Serious: Yes (Hospitalization)
  Sender: FDA-Public Use
  Company Number: US-ROCHE-1978084

PATIENT
  Age: 48 Year
  Sex: Female
  Weight: 59.928 kg

DRUGS (14)
  1. RITUXAN [Suspect]
     Active Substance: RITUXIMAB
     Indication: Multiple sclerosis
     Dosage: DATE OF SERVICES: 02/NOV/2020 (1000 MG), 16/NOV/2020 (1000 MG), DATE OF SERVICE- 09/MAY/2022, 23/MAY
     Route: 042
     Dates: start: 20150409
  2. RITUXAN [Suspect]
     Active Substance: RITUXIMAB
     Dosage: DATE OF SERVICE: 20/NOV/2017, 25/JAN/2019, 28/JAN/2019, 01/FEB/2019, 11/FEB/2019, 16/APR/2020, 30/AP
     Route: 042
     Dates: start: 20150818
  3. RITUXAN [Suspect]
     Active Substance: RITUXIMAB
     Dosage: DATE OF SERVICE: 20/NOV/2017, 28/JAN/2019, 01/FEB/2019, 11/FEB/2019, 16/APR/2020, 30/APR/2020, 09/MA
     Route: 042
     Dates: start: 20190125
  4. TOPAMAX [Concomitant]
     Active Substance: TOPIRAMATE
  5. WELLBUTRIN XL [Concomitant]
     Active Substance: BUPROPION HYDROCHLORIDE
  6. PROTONIX [Concomitant]
     Active Substance: PANTOPRAZOLE SODIUM
     Dosage: AS NEEDED
  7. XALATAN [Concomitant]
     Active Substance: LATANOPROST
     Dosage: EACH EYE ONE DROP
     Route: 047
  8. BONVIVA [Concomitant]
     Active Substance: IBANDRONATE SODIUM
     Dates: end: 20160419
  9. METOPROLOL SUCCINATE [Concomitant]
     Active Substance: METOPROLOL SUCCINATE
     Dosage: EXTENDED RELEASE TABLET
  10. VOLTAREN [Concomitant]
     Active Substance: DICLOFENAC SODIUM
     Dates: end: 20160101
  11. GABAPENTIN [Concomitant]
     Active Substance: GABAPENTIN
     Dates: end: 20160319
  12. CANDESARTAN CILEXETIL [Concomitant]
     Active Substance: CANDESARTAN CILEXETIL
     Route: 048
  13. TEMAZEPAM [Concomitant]
     Active Substance: TEMAZEPAM
  14. BOTOX [Concomitant]
     Active Substance: ONABOTULINUMTOXINA
     Indication: Migraine

REACTIONS (4)
  - Urinary tract infection [Unknown]
  - Off label use [Unknown]
  - Monocyte count increased [Recovered/Resolved]
  - Dysphemia [Unknown]

NARRATIVE: CASE EVENT DATE: 20160211
